FAERS Safety Report 10265289 (Version 1)
Quarter: 2014Q2

REPORT INFORMATION
  Report Type: Spontaneous
  Country: US (occurrence: None)
  Receive Date: 20140625
  Receipt Date: 20140625
  Transmission Date: 20141212
  Serious: No
  Sender: FDA-Public Use
  Company Number: None

PATIENT
  Age: 85 Year
  Sex: Male
  Weight: 84.1 kg

DRUGS (2)
  1. WARFARIN [Suspect]
     Indication: PULMONARY EMBOLISM
     Dates: start: 20140117, end: 20140517
  2. CLOPIDOGREL [Suspect]
     Route: 048
     Dates: start: 20040615

REACTIONS (2)
  - Gastric haemorrhage [None]
  - Diverticulum intestinal haemorrhagic [None]
